FAERS Safety Report 17787280 (Version 2)
Quarter: 2022Q2

REPORT INFORMATION
  Report Type: Spontaneous
  Country: US (occurrence: US)
  Receive Date: 20200514
  Receipt Date: 20220606
  Transmission Date: 20220721
  Serious: No
  Sender: FDA-Public Use
  Company Number: US-RIGEL PHARMACEUTICALS, INC.-2020FOS000144

PATIENT
  Age: 58 Year
  Sex: Male
  Weight: 154.2 kg

DRUGS (5)
  1. TAVALISSE [Suspect]
     Active Substance: FOSTAMATINIB
     Indication: Immune thrombocytopenia
     Dosage: 150 MG, BID
     Route: 048
     Dates: start: 2020
  2. TAVALISSE [Suspect]
     Active Substance: FOSTAMATINIB
     Dosage: 100 MG, BID
     Route: 048
     Dates: start: 20190408, end: 2020
  3. LISINOPRIL [Concomitant]
     Active Substance: LISINOPRIL
     Indication: Blood pressure management
     Dosage: 10 MG, UNK
     Route: 048
  4. CITALOPRAM [Concomitant]
     Active Substance: CITALOPRAM HYDROBROMIDE
     Indication: Sleep disorder
     Dosage: 20 MG, AT NIGHT
  5. COLCHICINE [Concomitant]
     Active Substance: COLCHICINE
     Indication: Product used for unknown indication
     Dosage: UNK
     Dates: start: 2020, end: 2020

REACTIONS (6)
  - Platelet count decreased [Unknown]
  - Gout [Not Recovered/Not Resolved]
  - Headache [Unknown]
  - Dehydration [Unknown]
  - Herpes zoster [Recovered/Resolved]
  - Weight increased [Not Recovered/Not Resolved]

NARRATIVE: CASE EVENT DATE: 20200225
